FAERS Safety Report 7691555-2 (Version None)
Quarter: 2011Q3

REPORT INFORMATION
  Report Type: 
  Country: None (occurrence: None)
  Receive Date: 20110818
  Receipt Date: 20110816
  Transmission Date: 20111222
  Serious: Yes (Other)
  Sender: FDA-Public Use
  Company Number: SE-PFIZER INC-2009221840

PATIENT
  Age: 43 Year
  Sex: Male

DRUGS (6)
  1. ZOLOFT [Suspect]
     Dosage: 75 MG DAILY
  2. RENNIE [Concomitant]
     Dosage: UNK
  3. THERALEN [Concomitant]
     Dosage: BEFORE NIGHT
     Dates: start: 19970101
  4. DIAZEPAM [Concomitant]
     Indication: ANXIETY
     Dosage: 2.5-5 MG TWICE WEEKLY
  5. ZOLOFT [Suspect]
     Indication: ANXIETY
     Dosage: 50 MG DAILY
     Dates: start: 19970101
  6. LINK [Concomitant]
     Dosage: UNK

REACTIONS (29)
  - CONVULSION [None]
  - SPEECH DISORDER [None]
  - MIGRAINE [None]
  - SEXUAL DYSFUNCTION [None]
  - HOT FLUSH [None]
  - DRUG WITHDRAWAL SYNDROME [None]
  - DIZZINESS [None]
  - VITAMIN D DECREASED [None]
  - NAUSEA [None]
  - VOMITING [None]
  - SWEAT GLAND DISORDER [None]
  - DECREASED APPETITE [None]
  - LACERATION [None]
  - PAIN IN EXTREMITY [None]
  - ABDOMINAL PAIN [None]
  - EYE PAIN [None]
  - VISUAL IMPAIRMENT [None]
  - CHEST PAIN [None]
  - TOOTHACHE [None]
  - TOOTH EXTRACTION [None]
  - EAR PAIN [None]
  - TINNITUS [None]
  - VISION BLURRED [None]
  - WHITE BLOOD CELL COUNT DECREASED [None]
  - DEPRESSED MOOD [None]
  - JOINT STIFFNESS [None]
  - DYSPEPSIA [None]
  - CONTUSION [None]
  - READING DISORDER [None]
